FAERS Safety Report 14797655 (Version 1)
Quarter: 2018Q2

REPORT INFORMATION
  Report Type: Report from Study
  Country: None (occurrence: BR)
  Receive Date: 20180424
  Receipt Date: 20180424
  Transmission Date: 20180711
  Serious: Yes (Other)
  Sender: FDA-Public Use
  Company Number: BR-ABBVIE-17K-020-2069312-00

PATIENT
  Sex: Female
  Weight: 79 kg

DRUGS (3)
  1. BENZETACIL (BENZATHINE BENZYLPENICILLIN) [Suspect]
     Active Substance: PENICILLIN G BENZATHINE
     Indication: PRODUCT USED FOR UNKNOWN INDICATION
     Route: 065
  2. HUMIRA [Suspect]
     Active Substance: ADALIMUMAB
     Indication: RHEUMATOID ARTHRITIS
     Route: 058
     Dates: start: 20151001
  3. HUMIRA [Suspect]
     Active Substance: ADALIMUMAB
     Route: 058

REACTIONS (8)
  - Limb injury [Recovering/Resolving]
  - Weight increased [Recovering/Resolving]
  - Scar [Not Recovered/Not Resolved]
  - Pruritus [Recovered/Resolved]
  - Pruritus generalised [Not Recovered/Not Resolved]
  - Peripheral swelling [Recovered/Resolved]
  - Foot deformity [Recovering/Resolving]
  - Gait disturbance [Not Recovered/Not Resolved]

NARRATIVE: CASE EVENT DATE: 2015
